FAERS Safety Report 21212438 (Version 1)
Quarter: 2022Q3

REPORT INFORMATION
  Report Type: Spontaneous
  Country: US (occurrence: US)
  Receive Date: 20220815
  Receipt Date: 20220815
  Transmission Date: 20221027
  Serious: No
  Sender: FDA-Public Use
  Company Number: US-PFIZER INC-202201054587

PATIENT
  Age: 33 Year
  Sex: Female

DRUGS (7)
  1. XELJANZ [Suspect]
     Active Substance: TOFACITINIB CITRATE
     Dosage: 10 MG, 2X/DAY
     Route: 048
  2. OMEPRAZOLE [Concomitant]
     Active Substance: OMEPRAZOLE
     Dosage: UNK
  3. TOPIRAMATE [Concomitant]
     Active Substance: TOPIRAMATE
     Dosage: UNK
  4. SUPRADOL [KETOROLAC TROMETHAMINE] [Concomitant]
     Indication: Pain
     Dosage: UNK
  5. PREDNISONE [Concomitant]
     Active Substance: PREDNISONE
     Dosage: UNK
  6. TYLENOL EXTRA STRENGTH [Concomitant]
     Active Substance: ACETAMINOPHEN
     Dosage: UNK
  7. VITAMIN D3 [Concomitant]
     Active Substance: CHOLECALCIFEROL
     Dosage: UNK

REACTIONS (7)
  - Drug ineffective [Unknown]
  - Nasopharyngitis [Unknown]
  - Headache [Unknown]
  - Rhinorrhoea [Unknown]
  - Cough [Unknown]
  - Diarrhoea [Unknown]
  - Nasal congestion [Unknown]

NARRATIVE: CASE EVENT DATE: 20220801
